FAERS Safety Report 5449773-X (Version None)
Quarter: 2007Q3

REPORT INFORMATION
  Report Type: 
  Country: None (occurrence: None)
  Receive Date: 20070910
  Receipt Date: 20070910
  Transmission Date: 20080115
  Serious: Yes (Death)
  Sender: FDA-Public Use
  Company Number: None

PATIENT
  Age: 46 Year
  Sex: Female
  Weight: 41.5 kg

DRUGS (5)
  1. NEVIRAPINE [Suspect]
     Indication: HIV INFECTION
     Dosage: 200 MG TWICE DAILY PO
     Route: 048
     Dates: start: 20070625, end: 20070731
  2. TRUVADA [Suspect]
     Indication: HIV INFECTION
     Dosage: 500 MG EVERY OTHER DAY PO
     Route: 048
     Dates: start: 20070625, end: 20070731
  3. COTRIMOXAZOLE [Concomitant]
  4. PLASIL (METOCLOPRAMIDE) [Concomitant]
  5. FANSIDAR (SULPHADOXINE/PYRIMETHAMINE) [Concomitant]

REACTIONS (12)
  - ABASIA [None]
  - BLOOD SODIUM DECREASED [None]
  - CONFUSIONAL STATE [None]
  - DIARRHOEA [None]
  - GENERAL PHYSICAL HEALTH DETERIORATION [None]
  - HAEMOGLOBIN DECREASED [None]
  - HYPERKALAEMIA [None]
  - PLATELET COUNT DECREASED [None]
  - PYREXIA [None]
  - RENAL FAILURE ACUTE [None]
  - VIRAL LOAD INCREASED [None]
  - WEIGHT DECREASED [None]
